FAERS Safety Report 7978705-5 (Version None)
Quarter: 2011Q4

REPORT INFORMATION
  Report Type: 
  Country: None (occurrence: None)
  Receive Date: 20111214
  Receipt Date: 20111206
  Transmission Date: 20120403
  Serious: Yes (Other)
  Sender: FDA-Public Use
  Company Number: JP-ASTELLAS-2011JP009135

PATIENT
  Age: 29 Year
  Sex: Female

DRUGS (7)
  1. METHYLPREDNISOLONE [Concomitant]
     Indication: PROPHYLAXIS AGAINST GRAFT VERSUS HOST DISEASE
     Dosage: 1 MG/KG, UNKNOWN/D
     Route: 065
  2. METHYLPREDNISOLONE [Concomitant]
     Route: 065
  3. FLUDARABINE PHOSPHATE [Concomitant]
     Dosage: 30 MG/M2, UNKNOWN/D
     Route: 065
  4. ANTI-THYMOCYTE GLOBULIN NOS [Concomitant]
     Dosage: 1 MG/KG, UNKNOWN/D
     Route: 065
  5. PROGRAF [Suspect]
     Indication: PROPHYLAXIS AGAINST GRAFT VERSUS HOST DISEASE
     Dosage: UNK MG/KG, UNKNOWN/D
     Route: 065
  6. CYTARABINE [Concomitant]
     Dosage: 1 G/M2, BID
     Route: 065
  7. MELPHALAN HYDROCHLORIDE [Concomitant]
     Dosage: 70 MG/M2, UNKNOWN/D
     Route: 065

REACTIONS (4)
  - DRUG INEFFECTIVE [None]
  - THROMBOTIC MICROANGIOPATHY [None]
  - VIRAL HAEMORRHAGIC CYSTITIS [None]
  - ACUTE GRAFT VERSUS HOST DISEASE [None]
